FAERS Safety Report 6808679-1 (Version None)
Quarter: 2010Q2

REPORT INFORMATION
  Report Type: 
  Country: None (occurrence: None)
  Receive Date: 20100629
  Receipt Date: 20090831
  Transmission Date: 20101027
  Serious: No
  Sender: FDA-Public Use
  Company Number: US-PFIZER INC-2009246495

PATIENT
  Sex: Male
  Weight: 72.562 kg

DRUGS (8)
  1. NITROSTAT [Suspect]
     Indication: ANGINA PECTORIS
     Dosage: 0.4 MG, UNK
     Route: 060
     Dates: start: 20090720
  2. ATENOLOL [Concomitant]
  3. XALATAN [Concomitant]
  4. DIGOXIN [Concomitant]
  5. WARFARIN [Concomitant]
  6. TRAMADOL [Concomitant]
  7. LISINOPRIL [Concomitant]
  8. FUROSEMIDE [Concomitant]

REACTIONS (1)
  - DRUG INEFFECTIVE [None]
